FAERS Safety Report 18286220 (Version 2)
Quarter: 2020Q4

REPORT INFORMATION
  Report Type: Report from Study
  Country: BR (occurrence: BR)
  Receive Date: 20200919
  Receipt Date: 20201006
  Transmission Date: 20210113
  Serious: Yes (Death, Hospitalization, Other)
  Sender: FDA-Public Use
  Company Number: BR-INCYTE CORPORATION-2020IN008997

PATIENT

DRUGS (2)
  1. JAKAVI [Suspect]
     Active Substance: RUXOLITINIB
     Indication: MYELOFIBROSIS
     Dosage: 1 DF, BID (1 TABLET OF 20 MG 2 TIMES PER DAY)
     Route: 048
     Dates: start: 20190613, end: 202006
  2. THALIDOMIDE [Concomitant]
     Active Substance: THALIDOMIDE
     Indication: REFRACTORY CYTOPENIA WITH UNILINEAGE DYSPLASIA
     Dosage: 1 DF, QD (1 TABLET OF 50 MG ONCE PER DAY)
     Route: 048
     Dates: start: 20191217, end: 20200618

REACTIONS (5)
  - COVID-19 [Fatal]
  - Multiple organ dysfunction syndrome [Unknown]
  - Respiratory failure [Fatal]
  - Sepsis [Unknown]
  - Acute respiratory distress syndrome [Unknown]

NARRATIVE: CASE EVENT DATE: 20200619
